FAERS Safety Report 23695915 (Version 4)
Quarter: 2024Q2

REPORT INFORMATION
  Report Type: Spontaneous
  Country: US (occurrence: US)
  Receive Date: 20240402
  Receipt Date: 20240529
  Transmission Date: 20240715
  Serious: Yes (Death)
  Sender: FDA-Public Use
  Company Number: US-002147023-NVSC2024US069541

PATIENT
  Age: 75 Year
  Sex: Male

DRUGS (1)
  1. PLUVICTO [Suspect]
     Active Substance: LUTETIUM LU-177 VIPIVOTIDE TETRAXETAN
     Indication: Drug therapy
     Dosage: 200 MCI (1 TIME)
     Route: 042
     Dates: end: 20240314

REACTIONS (1)
  - Death [Fatal]

NARRATIVE: CASE EVENT DATE: 20240328
